FAERS Safety Report 8129124-2 (Version None)
Quarter: 2012Q1

REPORT INFORMATION
  Report Type: 
  Country: None (occurrence: None)
  Receive Date: 20120210
  Receipt Date: 20111007
  Transmission Date: 20120608
  Serious: No
  Sender: FDA-Public Use
  Company Number: US-BRISTOL-MYERS SQUIBB COMPANY-16115917

PATIENT
  Age: 23 Year
  Sex: Female

DRUGS (2)
  1. LEFLUNOMIDE [Suspect]
  2. ORENCIA [Suspect]
     Indication: RHEUMATOID ARTHRITIS
     Dosage: TOLERATED THE FIRST AND SECOND INFUSIONS,NO OF INF: 4
     Route: 042
     Dates: start: 20110712

REACTIONS (2)
  - CHEST DISCOMFORT [None]
  - GASTROOESOPHAGEAL REFLUX DISEASE [None]
